FAERS Safety Report 7584742-5 (Version None)
Quarter: 2011Q2

REPORT INFORMATION
  Report Type: 
  Country: None (occurrence: None)
  Receive Date: 20110630
  Receipt Date: 20110621
  Transmission Date: 20111010
  Serious: Yes (Hospitalization)
  Sender: FDA-Public Use
  Company Number: PHHY2011TR55879

PATIENT
  Age: 52 Year
  Sex: Female

DRUGS (3)
  1. CARBAMAZEPINE [Suspect]
     Dosage: UNK UKN, UNK
  2. DEXAMETHASONE [Concomitant]
     Dosage: UNK UKN, UNK
  3. CEFTRIAXONE [Concomitant]
     Indication: URINARY TRACT INFECTION

REACTIONS (1)
  - CARDIAC ARREST [None]
